FAERS Safety Report 12488829 (Version 2)
Quarter: 2016Q4

REPORT INFORMATION
  Report Type: Spontaneous
  Country: US (occurrence: US)
  Receive Date: 20160622
  Receipt Date: 20161027
  Transmission Date: 20170207
  Serious: Yes (Life-Threatening, Hospitalization, Other)
  Sender: FDA-Public Use
  Company Number: US-PFIZER INC-2016303665

PATIENT
  Sex: Male

DRUGS (13)
  1. EXPAREL [Interacting]
     Active Substance: BUPIVACAINE
     Dosage: UNK(266 MG LIPOSAOMAL BUPIVACINE  MIXED WITH 100 MG OF BUPIVACAINE HYDROCHLORIDE)
  2. PROPRANOLOL [Concomitant]
     Active Substance: PROPRANOLOL\PROPRANOLOL HYDROCHLORIDE
     Dosage: 40 MG, TID
     Route: 048
     Dates: end: 20160603
  3. DULOXETINE. [Concomitant]
     Active Substance: DULOXETINE
     Dosage: 60 MG, BID
     Route: 048
     Dates: end: 20160603
  4. LISINOPRIL. [Concomitant]
     Active Substance: LISINOPRIL
     Dosage: 40 MG, UNK (QAM)
     Route: 048
     Dates: end: 20160601
  5. BUPROPION. [Concomitant]
     Active Substance: BUPROPION
     Dosage: 150 MG 12 HR TABLET - 300 MG PO QAM
     Route: 048
     Dates: end: 20160603
  6. TOPIRAMATE. [Concomitant]
     Active Substance: TOPIRAMATE
     Dosage: 100 MG, BID
     Route: 048
     Dates: end: 20160603
  7. GINGER ROOT [Concomitant]
     Active Substance: GINGER
     Dosage: UNK, DAILY (1 CAPSULE)
     Dates: end: 20160601
  8. OMEPRAZOLE. [Concomitant]
     Active Substance: OMEPRAZOLE
     Dosage: 20 MG, DAILY
     Route: 048
     Dates: end: 20160603
  9. BUPRENORPHINE. [Concomitant]
     Active Substance: BUPRENORPHINE
     Dosage: 20 UG, WEEKLY
     Route: 062
     Dates: end: 20160529
  10. PROPANOLOL HCL [Suspect]
     Active Substance: PROPRANOLOL HYDROCHLORIDE
     Dosage: 40 MG, TID
     Route: 048
     Dates: end: 20160306
  11. ROPINIROLE. [Concomitant]
     Active Substance: ROPINIROLE
     Dosage: 2 MG, UNK (QHS)
     Route: 048
     Dates: end: 20160603
  12. ALPRAZOLAM. [Concomitant]
     Active Substance: ALPRAZOLAM
     Dosage: 0.25 MG, AS NEEDED (PRN)
     Route: 048
     Dates: end: 20160531
  13. CYANOCOBALAMIN (VIT B12) [Concomitant]
     Dosage: 1000 UG, DAILY
     Route: 048
     Dates: end: 20160601

REACTIONS (3)
  - Bradycardia [Recovered/Resolved]
  - Hypotension [Unknown]
  - Drug interaction [Unknown]

NARRATIVE: CASE EVENT DATE: 20160603
